FAERS Safety Report 12907117 (Version 5)
Quarter: 2016Q4

REPORT INFORMATION
  Report Type: Report from Study
  Country: DE (occurrence: DE)
  Receive Date: 20161103
  Receipt Date: 20161128
  Transmission Date: 20170207
  Serious: Yes (Hospitalization)
  Sender: FDA-Public Use
  Company Number: DE-JNJFOC-20161024498

PATIENT
  Age: 67 Year
  Sex: Male
  Weight: 82 kg

DRUGS (6)
  1. OBINUTUZUMAB [Suspect]
     Active Substance: OBINUTUZUMAB
     Indication: B-CELL LYMPHOMA
     Dosage: EVERY THREE WEEKS FOR SIX COURSES
     Route: 042
     Dates: start: 20161005, end: 20161019
  2. IBRUTINIB [Suspect]
     Active Substance: IBRUTINIB
     Indication: B-CELL LYMPHOMA
     Route: 048
     Dates: start: 20161005, end: 20161025
  3. CLEXANE [Concomitant]
     Active Substance: ENOXAPARIN SODIUM
     Route: 065
  4. HEPARIN [Concomitant]
     Active Substance: HEPARIN SODIUM
     Route: 065
  5. OBINUTUZUMAB [Suspect]
     Active Substance: OBINUTUZUMAB
     Indication: B-CELL LYMPHOMA
     Route: 042
     Dates: start: 20161109
  6. NOVALGIN [Concomitant]
     Active Substance: METAMIZOLE SODIUM
     Route: 065

REACTIONS (1)
  - Myocardial infarction [Recovered/Resolved]

NARRATIVE: CASE EVENT DATE: 20161025
